FAERS Safety Report 16594967 (Version 1)
Quarter: 2019Q3

REPORT INFORMATION
  Report Type: Spontaneous
  Country: US (occurrence: US)
  Receive Date: 20190718
  Receipt Date: 20190718
  Transmission Date: 20191004
  Serious: No
  Sender: FDA-Public Use
  Company Number: US-ROCHE-2225579

PATIENT
  Age: 7 Year
  Sex: Male

DRUGS (2)
  1. HEMLIBRA [Suspect]
     Active Substance: EMICIZUMAB-KXWH
     Indication: FACTOR VIII DEFICIENCY
     Dosage: 84 MG SQ FOR 4 WEEKS, 42 MG SQ FOR 4 WEEKS ;ONGOING: UNKNOWN
     Route: 058
     Dates: start: 20181115
  2. HEMLIBRA [Suspect]
     Active Substance: EMICIZUMAB-KXWH
     Dosage: 84 MG SQ FOR 4 WEEKS, 42 MG SQ FOR 4 WEEKS ;ONGOIN
     Route: 058

REACTIONS (2)
  - Product preparation error [Unknown]
  - No adverse event [Unknown]
